FAERS Safety Report 15834740 (Version 1)
Quarter: 2019Q1

REPORT INFORMATION
  Report Type: Spontaneous
  Country: GB (occurrence: GB)
  Receive Date: 20190116
  Receipt Date: 20190116
  Transmission Date: 20190417
  Serious: Yes (Other)
  Sender: FDA-Public Use
  Company Number: GB-PFIZER INC-2019019175

PATIENT
  Age: 43 Year
  Sex: Female
  Weight: 59.87 kg

DRUGS (2)
  1. VENLAFAXINE HCL [Suspect]
     Active Substance: VENLAFAXINE HYDROCHLORIDE
     Indication: DEPRESSION
     Dosage: 150 MG, UNK
     Route: 048
     Dates: end: 20180825
  2. VENLAFAXINE HCL [Suspect]
     Active Substance: VENLAFAXINE HYDROCHLORIDE
     Dosage: 75 MG, UNK
     Route: 048
     Dates: start: 20180527

REACTIONS (9)
  - Dizziness [Recovered/Resolved]
  - Tension headache [Recovering/Resolving]
  - Sensory overload [Recovering/Resolving]
  - Tinnitus [Not Recovered/Not Resolved]
  - Photophobia [Recovering/Resolving]
  - Mania [Unknown]
  - Constipation [Recovered/Resolved]
  - Insomnia [Recovering/Resolving]
  - Insomnia [Recovered/Resolved]

NARRATIVE: CASE EVENT DATE: 2018
